FAERS Safety Report 13846896 (Version 1)
Quarter: 2017Q3

REPORT INFORMATION
  Report Type: Spontaneous
  Country: US (occurrence: US)
  Receive Date: 20170808
  Receipt Date: 20170808
  Transmission Date: 20171127
  Serious: No
  Sender: FDA-Public Use
  Company Number: US-SA-2017SA109381

PATIENT
  Age: 16 Year
  Sex: Male

DRUGS (1)
  1. XYZAL ALLERGY 24HR [Suspect]
     Active Substance: LEVOCETIRIZINE DIHYDROCHLORIDE
     Indication: HYPERSENSITIVITY
     Dosage: 4 TABLETS OF XYZAL IN 24HR (2 TABLETS LAST NIGHT?AND THEN TOOK 2 MORE TABLET THIS MORNING)

REACTIONS (1)
  - Overdose [Unknown]
